FAERS Safety Report 10583784 (Version 4)
Quarter: 2015Q1

REPORT INFORMATION
  Report Type: Spontaneous
  Country: IT (occurrence: IT)
  Receive Date: 20141114
  Receipt Date: 20150202
  Transmission Date: 20150720
  Serious: Yes (Death, Life-Threatening, Other)
  Sender: FDA-Public Use
  Company Number: IT-ELI_LILLY_AND_COMPANY-IT201411004846

PATIENT
  Age: 62 Year
  Sex: Male
  Weight: 98 kg

DRUGS (23)
  1. TORVAST [Concomitant]
     Active Substance: ATORVASTATIN
     Dosage: 80 MG, UNKNOWN
     Route: 048
     Dates: start: 20141014
  2. REOPRO [Suspect]
     Active Substance: ABCIXIMAB
     Indication: ACUTE MYOCARDIAL INFARCTION
  3. INEGY [Concomitant]
     Active Substance: EZETIMIBE\SIMVASTATIN
  4. MIDAZOLAM [Concomitant]
     Active Substance: MIDAZOLAM\MIDAZOLAM HYDROCHLORIDE
     Dosage: 1.5 MG, UNK
     Route: 042
     Dates: start: 20141015
  5. EFIENT [Suspect]
     Active Substance: PRASUGREL HYDROCHLORIDE
     Indication: ACUTE MYOCARDIAL INFARCTION
  6. EZETIMIBE. [Concomitant]
     Active Substance: EZETIMIBE
     Dosage: 10 MG, UNK
  7. LANSOPRAZOLE. [Concomitant]
     Active Substance: LANSOPRAZOLE
     Dosage: 15 MG, QD
  8. DOPAMINE HYDROCHLORIDE. [Concomitant]
     Active Substance: DOPAMINE HYDROCHLORIDE
  9. ASPIRINA [Concomitant]
     Active Substance: ASPIRIN
     Indication: ANTIPLATELET THERAPY
     Dosage: 100 MG, QD
     Route: 048
     Dates: start: 2007
  10. RANOLAZINE [Concomitant]
     Active Substance: RANOLAZINE
     Dosage: 500 MG, BID
  11. SODIUM BICARBONATE. [Concomitant]
     Active Substance: SODIUM BICARBONATE
  12. EFIENT [Suspect]
     Active Substance: PRASUGREL HYDROCHLORIDE
     Indication: CORONARY ANGIOPLASTY
     Dosage: UNK, UNKNOWN
     Route: 048
     Dates: start: 20141014, end: 20141014
  13. PLAVIX [Concomitant]
     Active Substance: CLOPIDOGREL BISULFATE
     Indication: ANTIPLATELET THERAPY
     Dosage: 75 MG, UNK
     Dates: start: 2007
  14. HEPARIN [Suspect]
     Active Substance: HEPARIN SODIUM
     Indication: PRODUCT USED FOR UNKNOWN INDICATION
     Dosage: 5000 IU, UNK
     Route: 042
     Dates: start: 20141014, end: 20141014
  15. HEPARIN [Suspect]
     Active Substance: HEPARIN SODIUM
     Dosage: 2000 IU, UNK
     Route: 042
     Dates: start: 20141014, end: 20141014
  16. CEFAMEZIN                          /00288502/ [Concomitant]
     Active Substance: CEFAZOLIN
     Dosage: 2 G, UNKNOWN
     Route: 042
  17. REOPRO [Suspect]
     Active Substance: ABCIXIMAB
     Indication: CORONARY ANGIOPLASTY
     Dosage: UNK, UNKNOWN
     Route: 042
     Dates: start: 20141014, end: 20141014
  18. NEBIVOLOL [Concomitant]
     Active Substance: NEBIVOLOL
     Dosage: 5 MG, QD
  19. METFORMIN [Concomitant]
     Active Substance: METFORMIN HYDROCHLORIDE
     Dosage: 500 MG, BID
  20. CANDESARTAN [Concomitant]
     Active Substance: CANDESARTAN
     Dosage: 16 MG, UNK
  21. TORVAST [Concomitant]
     Active Substance: ATORVASTATIN
     Dosage: 40 MG, QD
     Route: 048
  22. ADRENALINE                         /00003901/ [Concomitant]
     Active Substance: EPINEPHRINE
  23. MINITRAN                           /00003201/ [Concomitant]
     Dosage: 100 MG, UNK

REACTIONS (13)
  - Cardiac arrest [Recovered/Resolved]
  - Oliguria [Unknown]
  - Cardiac arrest [Fatal]
  - Respiratory acidosis [Fatal]
  - Subarachnoid haemorrhage [Fatal]
  - Coronary artery occlusion [Fatal]
  - Metabolic acidosis [Fatal]
  - Atrioventricular block complete [Unknown]
  - Respiratory acidosis [Recovered/Resolved]
  - Metabolic acidosis [Recovered/Resolved]
  - Ventricular tachycardia [Recovered/Resolved]
  - Coma [Unknown]
  - Hypotension [Unknown]

NARRATIVE: CASE EVENT DATE: 20141014
